FAERS Safety Report 7375766-1 (Version None)
Quarter: 2011Q1

REPORT INFORMATION
  Report Type: 
  Country: None (occurrence: None)
  Receive Date: 20110317
  Receipt Date: 20110302
  Transmission Date: 20110831
  Serious: Yes (Hospitalization, Other)
  Sender: FDA-Public Use
  Company Number: DSJ-2011-04648

PATIENT
  Age: 8 Decade
  Sex: Female

DRUGS (5)
  1. AMLODIPINE BESYLATE AND OLMESARTAN MEDOXOMIL [Suspect]
     Indication: HYPERTENSION
     Dosage: 20/5 MG (1 IN 1 D), PER ORAL
     Route: 048
     Dates: start: 20100101, end: 20100401
  2. CITALOPRAM [Concomitant]
  3. EZETIMIBE/SIMVASTATIN [Concomitant]
  4. ATENOLOL [Concomitant]
  5. PROPATYLNITRATE [Suspect]

REACTIONS (1)
  - MALAISE [None]
